FAERS Safety Report 13927756 (Version 1)
Quarter: 2017Q3

REPORT INFORMATION
  Report Type: Spontaneous
  Country: JP (occurrence: JP)
  Receive Date: 20170901
  Receipt Date: 20170901
  Transmission Date: 20171127
  Serious: Yes (Other)
  Sender: FDA-Public Use
  Company Number: JP-TEVA-802784ROM

PATIENT
  Sex: Female

DRUGS (1)
  1. RISEDRONATE SODIUM - BP [Suspect]
     Active Substance: RISEDRONATE SODIUM
     Indication: PRODUCT USED FOR UNKNOWN INDICATION
     Dosage: 75 MG, UNKNOWN
     Route: 065

REACTIONS (5)
  - Serology abnormal [Unknown]
  - Lumbar vertebral fracture [Unknown]
  - Gingival abscess [Unknown]
  - Gastrointestinal disorder [Unknown]
  - Spinal compression fracture [Not Recovered/Not Resolved]
